FAERS Safety Report 5870208-7 (Version None)
Quarter: 2008Q3

REPORT INFORMATION
  Report Type: 
  Country: None (occurrence: None)
  Receive Date: 20080902
  Receipt Date: 20080814
  Transmission Date: 20090109
  Serious: Yes (Life-Threatening)
  Sender: FDA-Public Use
  Company Number: CHPA2008US14125

PATIENT
  Age: 30 Month
  Sex: Female

DRUGS (1)
  1. DEXTROMETHORPHAN HYDROBROMIDE [Suspect]
     Dosage: 38 MG/KG, ONCE/SINGLE, ORAL
     Route: 048

REACTIONS (5)
  - ACCIDENTAL DRUG INTAKE BY CHILD [None]
  - ATAXIA [None]
  - DYSTONIA [None]
  - NYSTAGMUS [None]
  - OPISTHOTONUS [None]
